FAERS Safety Report 9222870 (Version 1)
Quarter: 2013Q2

REPORT INFORMATION
  Report Type: Spontaneous
  Country: US (occurrence: US)
  Receive Date: 20130410
  Receipt Date: 20130410
  Transmission Date: 20140414
  Serious: No
  Sender: FDA-Public Use
  Company Number: US-009507513-1304USA003391

PATIENT
  Age: 13 Year
  Sex: Male

DRUGS (1)
  1. NASONEX [Suspect]
     Indication: NASAL CONGESTION
     Route: 045

REACTIONS (2)
  - Nasal septum perforation [Unknown]
  - Wrong technique in drug usage process [Unknown]
